FAERS Safety Report 6509344-0 (Version None)
Quarter: 2009Q4

REPORT INFORMATION
  Report Type: 
  Country: None (occurrence: None)
  Receive Date: 20091218
  Receipt Date: 20091218
  Transmission Date: 20100525
  Serious: Yes (Hospitalization)
  Sender: FDA-Public Use
  Company Number: None

PATIENT
  Age: 58 Year
  Sex: Female
  Weight: 122.3 kg

DRUGS (24)
  1. SORAFENIB 200 MG BAYER [Suspect]
     Indication: NON-SMALL CELL LUNG CANCER
     Dosage: 400MG BID PO
     Route: 048
     Dates: start: 20090922, end: 20091211
  2. AUGMENTIN [Concomitant]
  3. PREDNISONE [Concomitant]
  4. GUAIFENESIN-CODEINE [Concomitant]
  5. METHADONE HYDROCHLORIDE [Concomitant]
  6. PSEUDOEPHEDRINE-GUAIFENESIN [Concomitant]
  7. ONDANSETRON [Concomitant]
  8. LORAZEPAM [Concomitant]
  9. CHOLECALCIFEROL [Concomitant]
  10. CALCIUM ELEMENTAL [Concomitant]
  11. ROSUVASTATIN [Concomitant]
  12. CARBAMAZEPINE [Concomitant]
  13. HYPERTONIC NASAL WASH [Concomitant]
  14. IPRATRAPIUM-ALBUTEROL [Concomitant]
  15. DICLOFENAC SODIUM [Concomitant]
  16. DOCUSATE CALCIUM [Concomitant]
  17. ACETAMINOPHEN AND HYDROCODONE BITARTRATE [Concomitant]
  18. FLUTICASONE-SALMETERAL [Concomitant]
  19. VALSARTAN-HYDROCHLOROTHIAZIDE [Concomitant]
  20. FLUOXETINE [Concomitant]
  21. NITROGLYCERIN [Concomitant]
  22. CLOPIDOGREL [Concomitant]
  23. OMEPRAZOLE [Concomitant]
  24. PROCHLORPERAZINE MALEATE [Concomitant]

REACTIONS (5)
  - BRONCHIAL OBSTRUCTION [None]
  - MALIGNANT NEOPLASM PROGRESSION [None]
  - NON-SMALL CELL LUNG CANCER [None]
  - OBSTRUCTIVE AIRWAYS DISORDER [None]
  - WHEEZING [None]
